FAERS Safety Report 8234843-3 (Version None)
Quarter: 2012Q1

REPORT INFORMATION
  Report Type: 
  Country: None (occurrence: None)
  Receive Date: 20120322
  Receipt Date: 20120312
  Transmission Date: 20120608
  Serious: Yes (Other)
  Sender: FDA-Public Use
  Company Number: 1225152

PATIENT
  Age: 74 Year
  Sex: Female

DRUGS (1)
  1. (PAMIDRONIC ACID) [Suspect]
     Indication: PRODUCT USED FOR UNKNOWN INDICATION

REACTIONS (4)
  - ERYTHEMA [None]
  - PAIN OF SKIN [None]
  - RASH VESICULAR [None]
  - RASH GENERALISED [None]
